FAERS Safety Report 11113082 (Version 1)
Quarter: 2015Q2

REPORT INFORMATION
  Report Type: Spontaneous
  Country: DE (occurrence: DE)
  Receive Date: 20150514
  Receipt Date: 20150514
  Transmission Date: 20150821
  Serious: Yes (Other)
  Sender: FDA-Public Use
  Company Number: DE-PFIZER INC-2015158130

PATIENT
  Age: 44 Year
  Sex: Female
  Weight: 83 kg

DRUGS (4)
  1. VENLAFAXINE HCL [Suspect]
     Active Substance: VENLAFAXINE HYDROCHLORIDE
     Indication: DEPRESSION
     Dosage: 300 MG, 1X/DAY, 0 - 39.1. GESTATIONAL WEEK, 1ST TRIMESTER
     Route: 048
     Dates: start: 20131025, end: 20140726
  2. PROPANOLOL [Concomitant]
     Active Substance: PROPRANOLOL HYDROCHLORIDE
     Dosage: 10 MG, 1X/DAY, 0 - 39.1. GESTATIONAL WEEK, 1ST TRIMESTER
     Route: 048
     Dates: start: 20131025, end: 20140726
  3. CYTOTEC [Concomitant]
     Active Substance: MISOPROSTOL
     Indication: LABOUR INDUCTION
     Dosage: UNK, 38.6 GESTATIONAL WEEK, 3RD TRIMESTER
     Route: 048
     Dates: start: 20140724, end: 20140724
  4. BUSCOPAN [Concomitant]
     Active Substance: BUTYLSCOPOLAMINE BROMIDE
     Indication: LABOUR PAIN
     Dosage: UNK, 39.1 GESTATIONAL WEEK, 3RD TRIMESTER
     Route: 042
     Dates: start: 20140726, end: 20140726

REACTIONS (2)
  - Polyhydramnios [Recovered/Resolved]
  - Influenza like illness [Unknown]

NARRATIVE: CASE EVENT DATE: 2014
